FAERS Safety Report 14919256 (Version 1)
Quarter: 2018Q2

REPORT INFORMATION
  Report Type: Spontaneous
  Country: CA (occurrence: CA)
  Receive Date: 20180521
  Receipt Date: 20180521
  Transmission Date: 20180711
  Serious: Yes (Other)
  Sender: FDA-Public Use
  Company Number: CA-PFIZER INC-2018200491

PATIENT
  Age: 72 Year
  Sex: Male
  Weight: 89 kg

DRUGS (4)
  1. COVERSYL PLUS LD [Concomitant]
     Dosage: UNK
  2. CELEBREX [Concomitant]
     Active Substance: CELECOXIB
     Dosage: UNK
  3. PANTOPRAZOLE [Suspect]
     Active Substance: PANTOPRAZOLE
     Dosage: 40 MG, QD
     Route: 048
  4. OXYNEO [Concomitant]
     Active Substance: OXYCODONE
     Dosage: UNK

REACTIONS (7)
  - Blood pressure fluctuation [Not Recovered/Not Resolved]
  - Dyspnoea [Not Recovered/Not Resolved]
  - Blood cholesterol increased [Not Recovered/Not Resolved]
  - Blood urine present [Not Recovered/Not Resolved]
  - Haemorrhoids [Not Recovered/Not Resolved]
  - Respiratory tract oedema [Not Recovered/Not Resolved]
  - Anal haemorrhage [Not Recovered/Not Resolved]
